FAERS Safety Report 25949477 (Version 2)
Quarter: 2025Q4

REPORT INFORMATION
  Report Type: Spontaneous
  Country: US (occurrence: US)
  Receive Date: 20251022
  Receipt Date: 20251201
  Transmission Date: 20260117
  Serious: Yes (Other)
  Sender: BAYER HEALTHCARE PHARMACEUTICALS INC.
  Company Number: US-BAYER-2025A138857

PATIENT
  Age: 58 Year
  Sex: Female
  Weight: 52.608 kg

DRUGS (2)
  1. MIRENA [Suspect]
     Active Substance: LEVONORGESTREL
     Indication: Heavy menstrual bleeding
     Dosage: 20?G/DAY
     Route: 015
     Dates: start: 20170113, end: 20251028
  2. MIRENA [Suspect]
     Active Substance: LEVONORGESTREL
     Indication: Endometrial hyperplasia

REACTIONS (6)
  - Embedded device [Recovered/Resolved]
  - Device expulsion [Recovered/Resolved]
  - Complication of device removal [None]
  - Complication of device removal [None]
  - Complication of device removal [None]
  - Device use issue [None]

NARRATIVE: CASE EVENT DATE: 20180101
